FAERS Safety Report 5798262-1 (Version None)
Quarter: 2008Q3

REPORT INFORMATION
  Report Type: 
  Country: None (occurrence: None)
  Receive Date: 20080701
  Receipt Date: 20080624
  Transmission Date: 20090109
  Serious: No
  Sender: FDA-Public Use
  Company Number: APP200800559

PATIENT
  Age: 64 Year
  Sex: Female
  Weight: 99.8 kg

DRUGS (13)
  1. HEPARIN SODIUM INJECTION [Suspect]
     Indication: ANTICOAGULANT THERAPY
     Dosage: 6000 USP UNITS, JUST PRIOR TO DIALYSIS TREATMENT., INTRAVENOUS BOLUS
     Route: 040
     Dates: start: 20080623, end: 20080623
  2. HEPARIN SODIUM INJECTION [Suspect]
     Dosage: 6000 USP UNITS, JUST PRIOR TO DIALYSIS TREATMENT., INTRAVENOUS BOLUS
     Route: 040
     Dates: start: 20080625, end: 20080625
  3. ATENOLOL [Concomitant]
  4. ENALAPRIL MALEATE [Concomitant]
  5. FELODIPINE [Concomitant]
  6. GLIPIZIDE [Concomitant]
  7. LANTUS [Concomitant]
  8. NIACIN [Concomitant]
  9. PHOSLO [Concomitant]
  10. ALBUTEROL [Concomitant]
  11. ZEMPLAR [Concomitant]
  12. ARANESP [Concomitant]
  13. VENOFER [Concomitant]

REACTIONS (4)
  - DYSPHAGIA [None]
  - PRURITUS [None]
  - SWELLING [None]
  - URTICARIA [None]
